FAERS Safety Report 9775225 (Version 1)
Quarter: 2013Q4

REPORT INFORMATION
  Report Type: Spontaneous
  Country: US (occurrence: None)
  Receive Date: 20131219
  Receipt Date: 20131219
  Transmission Date: 20140711
  Serious: Yes (Other)
  Sender: FDA-Public Use
  Company Number: None

PATIENT
  Age: 81 Year
  Sex: Female
  Weight: 96.16 kg

DRUGS (1)
  1. TIGER BALM ULTRA STRENGTH [Suspect]
     Indication: MYALGIA
     Dosage: 1 FINGER TIP OF THE SALVE, ONCE DAILY, APPLIED TO A SURFACE, USUALLY THE SKIN
     Route: 061
     Dates: start: 20131214, end: 20131215

REACTIONS (4)
  - Application site vesicles [None]
  - Application site papules [None]
  - Application site erythema [None]
  - Application site warmth [None]
